FAERS Safety Report 8327583-3 (Version None)
Quarter: 2012Q2

REPORT INFORMATION
  Report Type: 
  Country: None (occurrence: None)
  Receive Date: 20120502
  Receipt Date: 20120418
  Transmission Date: 20120825
  Serious: No
  Sender: FDA-Public Use
  Company Number: US-BAYER-2012-039131

PATIENT
  Age: 21 Year
  Weight: 54 kg

DRUGS (2)
  1. ASPIRIN [Suspect]
     Dosage: UNK
     Route: 048
     Dates: start: 20111001
  2. NAPROXEN SODIUM [Suspect]
     Indication: HEADACHE
     Dosage: 1 U, UNK
     Route: 048
     Dates: start: 20110101, end: 20110901

REACTIONS (2)
  - THERAPEUTIC RESPONSE UNEXPECTED [None]
  - THERAPEUTIC PRODUCT INEFFECTIVE [None]
